FAERS Safety Report 9288602 (Version 2)
Quarter: 2013Q3

REPORT INFORMATION
  Report Type: Spontaneous
  Country: JP (occurrence: JP)
  Receive Date: 20130514
  Receipt Date: 20130710
  Transmission Date: 20140515
  Serious: Yes (Other)
  Sender: FDA-Public Use
  Company Number: JP-NAPPMUNDI-GBR-2013-0013968

PATIENT
  Age: 76 Year
  Sex: Male

DRUGS (1)
  1. OXYCODONE HCL PR TABLET [Suspect]
     Indication: CANCER PAIN
     Dosage: 10 MG, DAILY
     Route: 048
     Dates: start: 20130311

REACTIONS (1)
  - Delirium [Recovering/Resolving]
